FAERS Safety Report 5953898-X (Version None)
Quarter: 2008Q4

REPORT INFORMATION
  Report Type: 
  Country: None (occurrence: None)
  Receive Date: 20081114
  Receipt Date: 20081110
  Transmission Date: 20090506
  Serious: Yes (Other)
  Sender: FDA-Public Use
  Company Number: JP-B.I. PHARMACEUTICALS,INC./RIDGEFIELD-2008-BP-15913YA

PATIENT
  Age: 78 Year
  Sex: Male
  Weight: 55 kg

DRUGS (2)
  1. TAMSULOSIN HCL [Suspect]
     Indication: BENIGN PROSTATIC HYPERPLASIA
     Dosage: .2MG
     Route: 048
  2. VESICARE [Suspect]
     Indication: HYPERTONIC BLADDER
     Dosage: 5MG
     Route: 048
     Dates: start: 20070327, end: 20070410

REACTIONS (1)
  - METASTASES TO LIVER [None]
